FAERS Safety Report 19146764 (Version 1)
Quarter: 2021Q2

REPORT INFORMATION
  Report Type: Spontaneous
  Country: CN (occurrence: CN)
  Receive Date: 20210416
  Receipt Date: 20210416
  Transmission Date: 20210717
  Serious: Yes (Hospitalization)
  Sender: FDA-Public Use
  Company Number: CN-PFIZER INC-2021388048

PATIENT
  Age: 68 Year
  Sex: Male
  Weight: 69 kg

DRUGS (6)
  1. SODIUM CHLORIDE. [Concomitant]
     Active Substance: SODIUM CHLORIDE
     Indication: VEHICLE SOLUTION USE
     Dosage: 100.000 ML, 1X/DAY
     Route: 037
     Dates: start: 20210226, end: 20210226
  2. SODIUM CHLORIDE. [Concomitant]
     Active Substance: SODIUM CHLORIDE
     Indication: VEHICLE SOLUTION USE
     Dosage: 250.000 ML, 2X/DAY
     Route: 041
     Dates: start: 20210305, end: 20210307
  3. CYTOSAR [Suspect]
     Active Substance: CYTARABINE
     Indication: ACUTE MYELOID LEUKAEMIA
     Dosage: 0.500 G, 1X/DAY
     Route: 037
     Dates: start: 20210226, end: 20210226
  4. CYTOSAR [Suspect]
     Active Substance: CYTARABINE
     Dosage: 1.730 G, 2X/DAY
     Route: 041
     Dates: start: 20210305, end: 20210307
  5. METHOTREXATE. [Suspect]
     Active Substance: METHOTREXATE
     Indication: ACUTE MYELOID LEUKAEMIA
     Dosage: 5.000 ML, 1X/DAY
     Route: 037
     Dates: start: 20210226, end: 20210226
  6. SODIUM CHLORIDE. [Concomitant]
     Active Substance: SODIUM CHLORIDE
     Dosage: 10.000 ML, 1X/DAY
     Route: 037
     Dates: start: 20210226, end: 20210226

REACTIONS (6)
  - White blood cell count decreased [Recovering/Resolving]
  - Blood count abnormal [Recovering/Resolving]
  - White blood cell count increased [Recovering/Resolving]
  - Neutrophil count increased [Recovering/Resolving]
  - Neutrophil count decreased [Unknown]
  - Platelet count decreased [Recovering/Resolving]

NARRATIVE: CASE EVENT DATE: 20210306
